FAERS Safety Report 10770220 (Version 1)
Quarter: 2015Q1

REPORT INFORMATION
  Report Type: Spontaneous
  Country: IT (occurrence: IT)
  Receive Date: 20150206
  Receipt Date: 20150206
  Transmission Date: 20150721
  Serious: Yes (Hospitalization)
  Sender: FDA-Public Use
  Company Number: IT-BAYER-2015-018177

PATIENT
  Age: 60 Year
  Sex: Male

DRUGS (1)
  1. ASPIRINA [Suspect]
     Active Substance: ASPIRIN
     Dosage: UNK
     Dates: start: 20141127, end: 20141127

REACTIONS (2)
  - Presyncope [Unknown]
  - Melaena [Unknown]

NARRATIVE: CASE EVENT DATE: 20141127
